FAERS Safety Report 18543771 (Version 1)
Quarter: 2020Q4

REPORT INFORMATION
  Report Type: Spontaneous
  Country: US (occurrence: US)
  Receive Date: 20201125
  Receipt Date: 20201125
  Transmission Date: 20210114
  Serious: Yes (Hospitalization)
  Sender: FDA-Public Use
  Company Number: US-ROCHE-2719622

PATIENT
  Age: 76 Year
  Sex: Male

DRUGS (23)
  1. BISACODYL. [Concomitant]
     Active Substance: BISACODYL
  2. BUDESONIDE. [Concomitant]
     Active Substance: BUDESONIDE
  3. LOPERAMIDE [Concomitant]
     Active Substance: LOPERAMIDE
  4. MAGNESIUMOXIDE [Concomitant]
     Active Substance: MAGNESIUM OXIDE
  5. PROCHLORPERAZINE. [Concomitant]
     Active Substance: PROCHLORPERAZINE
  6. SILDENAFIL. [Concomitant]
     Active Substance: SILDENAFIL
  7. ESBRIET [Suspect]
     Active Substance: PIRFENIDONE
     Indication: IDIOPATHIC PULMONARY FIBROSIS
     Route: 048
     Dates: start: 20190411
  8. AMLODIPINE [Concomitant]
     Active Substance: AMLODIPINE BESYLATE
  9. FUROSEMIDE. [Concomitant]
     Active Substance: FUROSEMIDE
  10. TEMAZEPAM. [Concomitant]
     Active Substance: TEMAZEPAM
  11. IPRATROPIUM/ALBUTEROL [Concomitant]
     Active Substance: ALBUTEROL\IPRATROPIUM
  12. MORPHINE [Concomitant]
     Active Substance: MORPHINE
  13. SERTRALINE [Concomitant]
     Active Substance: SERTRALINE HYDROCHLORIDE
  14. ALPRAZOLAM. [Concomitant]
     Active Substance: ALPRAZOLAM
  15. HALOPERIDOL. [Concomitant]
     Active Substance: HALOPERIDOL
  16. POTASSIUM CHLORIDE ER [Concomitant]
     Active Substance: POTASSIUM CHLORIDE
  17. HYOSCYAMINE. [Concomitant]
     Active Substance: HYOSCYAMINE
  18. DOXYCYCLIN [Concomitant]
     Active Substance: DOXYCYCLINE
  19. LEVOTHYROXINE. [Concomitant]
     Active Substance: LEVOTHYROXINE
  20. PREDNISONE. [Concomitant]
     Active Substance: PREDNISONE
  21. ACETAMIN [Concomitant]
     Active Substance: ACETAMINOPHEN
  22. BUPROPION SR [Concomitant]
     Active Substance: BUPROPION HYDROCHLORIDE
  23. METOPROLOL. [Concomitant]
     Active Substance: METOPROLOL

REACTIONS (1)
  - Respiratory disorder [Unknown]

NARRATIVE: CASE EVENT DATE: 20201114
